FAERS Safety Report 10134439 (Version 2)
Quarter: 2015Q1

REPORT INFORMATION
  Report Type: Other
  Country: None (occurrence: US)
  Receive Date: 20140428
  Receipt Date: 20150220
  Transmission Date: 20150720
  Serious: Yes (Death, Hospitalization, Other)
  Sender: FDA-Public Use
  Company Number: US-GSKPPD-2014GSK036846

PATIENT
  Age: 61 Year
  Sex: Male
  Weight: 158.9 kg

DRUGS (3)
  1. AVANDIA [Suspect]
     Active Substance: ROSIGLITAZONE MALEATE
     Indication: DIABETES MELLITUS
     Dosage: DATES OF AVANDIA USE COULD NOT BE CONFIRMED IN RECORDS REVIEWED.
     Route: 048
  2. DYAZIDE [Concomitant]
     Active Substance: HYDROCHLOROTHIAZIDE\TRIAMTERENE
  3. PROCARDIA [Concomitant]
     Active Substance: NIFEDIPINE

REACTIONS (4)
  - Atrial fibrillation [Not Recovered/Not Resolved]
  - Cardiac failure congestive [Not Recovered/Not Resolved]
  - Sudden cardiac death [Unknown]
  - Acute myocardial infarction [Fatal]

NARRATIVE: CASE EVENT DATE: 20060316
